FAERS Safety Report 4333330-2 (Version None)
Quarter: 2004Q2

REPORT INFORMATION
  Report Type: 
  Country: None (occurrence: None)
  Receive Date: 20040406
  Receipt Date: 20021212
  Transmission Date: 20050107
  Serious: Yes (Life-Threatening, Hospitalization)
  Sender: FDA-Public Use
  Company Number: JP-MERCK-0212USA01317

PATIENT
  Age: 57 Year
  Sex: Male

DRUGS (7)
  1. ALLOPURINOL [Concomitant]
     Route: 065
     Dates: start: 19960207, end: 20021211
  2. ASPIRIN ALUMINUM [Concomitant]
     Route: 065
     Dates: start: 20000112, end: 20021211
  3. BENIDIPINE HYDROCHLORIDE [Suspect]
     Indication: HYPERTENSION
     Route: 048
     Dates: start: 19991208, end: 20021211
  4. ISOSORBIDE DINITRATE [Concomitant]
     Route: 065
     Dates: start: 20000112, end: 20021211
  5. COZAAR [Suspect]
     Indication: HYPERTENSION
     Route: 048
     Dates: start: 20000420, end: 20021211
  6. NICORANDIL [Concomitant]
     Route: 065
     Dates: start: 19951228, end: 20021211
  7. PRAVASTATIN SODIUM [Concomitant]
     Route: 065
     Dates: start: 20000202, end: 20021211

REACTIONS (1)
  - INTERSTITIAL LUNG DISEASE [None]
